FAERS Safety Report 7934904-X (Version None)
Quarter: 2011Q4

REPORT INFORMATION
  Report Type: 
  Country: None (occurrence: None)
  Receive Date: 20111118
  Receipt Date: 20111102
  Transmission Date: 20120403
  Serious: Yes (Hospitalization)
  Sender: FDA-Public Use
  Company Number: CN201110004225

PATIENT
  Age: 57 Year
  Sex: Male
  Weight: 69 kg

DRUGS (4)
  1. ETOPOSIDE [Suspect]
     Indication: NON-SMALL CELL LUNG CANCER STAGE III
     Dosage: 90 MG, DAYS 1-5
     Dates: start: 20110718
  2. RADIATION (RADIATION) [Suspect]
     Indication: NON-SMALL CELL LUNG CANCER STAGE III
  3. RADIATION (RADIATION) [Suspect]
     Indication: NON-SMALL CELL LUNG CANCER STAGE III
     Dosage: 50 GY/25F/33D
     Dates: start: 20110718, end: 20110819
  4. CISPLATIN [Suspect]
     Indication: NON-SMALL CELL LUNG CANCER STAGE III
     Dosage: 90 MG, DAYS 1-8
     Dates: start: 20110718, end: 20110819

REACTIONS (1)
  - CEREBRAL INFARCTION [None]
